FAERS Safety Report 8544677-8 (Version None)
Quarter: 2012Q3

REPORT INFORMATION
  Report Type: 
  Country: None (occurrence: None)
  Receive Date: 20120727
  Receipt Date: 20120723
  Transmission Date: 20120928
  Serious: Yes (Life-Threatening, Hospitalization)
  Sender: FDA-Public Use
  Company Number: US-ROCHE-1083161

PATIENT
  Sex: Male

DRUGS (6)
  1. PEGASYS [Suspect]
     Indication: HEPATITIS C
     Route: 058
     Dates: start: 20120308, end: 20120620
  2. TOPAMAX [Concomitant]
  3. COPEGUS [Suspect]
     Dosage: RESTARTED
  4. COPEGUS [Suspect]
     Indication: HEPATITIS C
     Route: 048
     Dates: start: 20120308, end: 20120622
  5. BENICAR [Concomitant]
  6. PEGASYS [Suspect]
     Dosage: RESTARTED

REACTIONS (2)
  - SYNCOPE [None]
  - BRADYCARDIA [None]
